FAERS Safety Report 12897735 (Version 1)
Quarter: 2016Q4

REPORT INFORMATION
  Report Type: Spontaneous
  Country: US (occurrence: US)
  Receive Date: 20161031
  Receipt Date: 20161031
  Transmission Date: 20170207
  Serious: No
  Sender: FDA-Public Use
  Company Number: US-PFIZER INC-2016497220

PATIENT
  Age: 74 Year
  Sex: Male

DRUGS (2)
  1. QUINAPRIL. [Suspect]
     Active Substance: QUINAPRIL
     Dosage: UNK [I TAKE 5 MG/ CUT THE 20 MG TABLET INTO QUARTERS]
  2. QUINAPRIL. [Suspect]
     Active Substance: QUINAPRIL
     Dosage: UNK [CUTTING 10 MG PILL TO GET 5 MG]

REACTIONS (2)
  - Drug ineffective [Unknown]
  - Intentional underdose [Unknown]
